FAERS Safety Report 7901085-8 (Version None)
Quarter: 2011Q4

REPORT INFORMATION
  Report Type: 
  Country: None (occurrence: None)
  Receive Date: 20111108
  Receipt Date: 20111031
  Transmission Date: 20120403
  Serious: Yes (Hospitalization)
  Sender: FDA-Public Use
  Company Number: DE-TEVA-307142GER

PATIENT
  Age: 19 Year
  Sex: Female

DRUGS (3)
  1. CISPLATIN [Concomitant]
     Indication: NASOPHARYNGEAL CANCER
     Dates: start: 20090601
  2. FOLIC ACID [Concomitant]
     Indication: NASOPHARYNGEAL CANCER
     Dates: start: 20090601
  3. FLUOROURACIL [Suspect]
     Indication: NASOPHARYNGEAL CANCER
     Dates: start: 20090601

REACTIONS (9)
  - OEDEMA PERIPHERAL [None]
  - VITAMIN B1 DEFICIENCY [None]
  - ELECTROLYTE IMBALANCE [None]
  - PARAESTHESIA [None]
  - ENCEPHALOPATHY [None]
  - LACTIC ACIDOSIS [None]
  - NEUROPATHY PERIPHERAL [None]
  - MUCOSAL INFLAMMATION [None]
  - AUTONOMIC NERVOUS SYSTEM IMBALANCE [None]
